FAERS Safety Report 7420331-0 (Version None)
Quarter: 2011Q2

REPORT INFORMATION
  Report Type: 
  Country: None (occurrence: None)
  Receive Date: 20110418
  Receipt Date: 20110413
  Transmission Date: 20111010
  Serious: Yes (Other)
  Sender: FDA-Public Use
  Company Number: US-PFIZER INC-2011081878

PATIENT
  Sex: Male
  Weight: 58.957 kg

DRUGS (2)
  1. GLUCOPHAGE [Concomitant]
     Indication: DIABETES MELLITUS
     Dosage: 850 MG, 2X/DAY
  2. VIAGRA [Suspect]
     Dosage: UNK
     Route: 048
     Dates: start: 20110411

REACTIONS (4)
  - DYSURIA [None]
  - PAINFUL ERECTION [None]
  - ACCIDENTAL EXPOSURE [None]
  - ERECTION INCREASED [None]
